FAERS Safety Report 5837965-7 (Version None)
Quarter: 2008Q3

REPORT INFORMATION
  Report Type: 
  Country: None (occurrence: None)
  Receive Date: 20080808
  Receipt Date: 20071220
  Transmission Date: 20090109
  Serious: No
  Sender: FDA-Public Use
  Company Number: A0700666A

PATIENT
  Age: 81 Year
  Sex: Male

DRUGS (7)
  1. PAXIL [Suspect]
     Indication: ANXIETY
     Dosage: 20MG PER DAY
     Route: 048
     Dates: start: 20070101
  2. METHADONE HCL [Concomitant]
  3. COREG [Concomitant]
  4. COZAAR [Concomitant]
  5. FLOMAX [Concomitant]
  6. SIMVASTATIN [Concomitant]
  7. OMEPRAZOLE [Concomitant]

REACTIONS (2)
  - NIGHTMARE [None]
  - SLEEP TERROR [None]
